FAERS Safety Report 9648206 (Version 1)
Quarter: 2013Q4

REPORT INFORMATION
  Report Type: Spontaneous
  Country: FR (occurrence: FR)
  Receive Date: 20131028
  Receipt Date: 20131028
  Transmission Date: 20140711
  Serious: Yes (Other)
  Sender: FDA-Public Use
  Company Number: PHHY2013FR120297

PATIENT
  Age: 30 Year
  Sex: Female

DRUGS (2)
  1. GLIVEC [Suspect]
     Indication: ACUTE LYMPHOCYTIC LEUKAEMIA
     Dosage: 400 MG, QD
     Route: 048
     Dates: start: 20130716, end: 20130912
  2. GLIVEC [Suspect]
     Dosage: 800 MG, QD
     Route: 048
     Dates: start: 20130913, end: 20130919

REACTIONS (1)
  - Hepatocellular injury [Recovered/Resolved]
